FAERS Safety Report 9330254 (Version 1)
Quarter: 2013Q2

REPORT INFORMATION
  Report Type: Spontaneous
  Country: DE (occurrence: DE)
  Receive Date: 20130605
  Receipt Date: 20130605
  Transmission Date: 20140414
  Serious: Yes (Life-Threatening)
  Sender: FDA-Public Use
  Company Number: DE-MERCK-1305DEU016752

PATIENT
  Age: 53 Year
  Sex: Male
  Weight: 92 kg

DRUGS (2)
  1. INEGY [Suspect]
     Indication: HYPERLIPIDAEMIA
     Dosage: 1 X/D
     Route: 048
  2. SIMVASTATIN [Suspect]
     Indication: HYPERLIPIDAEMIA
     Dosage: 40 MG, QD
     Route: 048

REACTIONS (2)
  - Renal failure acute [Recovering/Resolving]
  - Rhabdomyolysis [Recovering/Resolving]
